FAERS Safety Report 22221065 (Version 3)
Quarter: 2023Q2

REPORT INFORMATION
  Report Type: Spontaneous
  Country: DE (occurrence: DE)
  Receive Date: 20230418
  Receipt Date: 20230520
  Transmission Date: 20230721
  Serious: Yes (Death, Congenital Anomaly, Other)
  Sender: FDA-Public Use
  Company Number: DE-UCBSA-2023017714

PATIENT

DRUGS (3)
  1. LACOSAMIDE [Suspect]
     Active Substance: LACOSAMIDE
     Indication: Seizure
     Dosage: UNK (MATERNAL EXPOSURE DURING PREGNANCY: UNK, QD)
     Route: 064
  2. LACOSAMIDE [Suspect]
     Active Substance: LACOSAMIDE
     Indication: Foetal exposure during pregnancy
  3. CARBAMAZEPINE [Suspect]
     Active Substance: CARBAMAZEPINE
     Indication: Product used for unknown indication
     Dosage: UNK(MATERNAL EXPOSURE DURING PREGNANCY: UNK)
     Route: 064

REACTIONS (4)
  - Hepatic arteriovenous malformation [Fatal]
  - Hydrops foetalis [Fatal]
  - Arrhythmia [Unknown]
  - Foetal exposure during pregnancy [Unknown]
